FAERS Safety Report 22204931 (Version 1)
Quarter: 2023Q2

REPORT INFORMATION
  Report Type: Report from Study
  Country: BR (occurrence: BR)
  Receive Date: 20230413
  Receipt Date: 20230413
  Transmission Date: 20230721
  Serious: Yes (Other)
  Sender: FDA-Public Use
  Company Number: BR-CELLTRION INC.-2023BR007417

PATIENT

DRUGS (6)
  1. INFLIXIMAB [Suspect]
     Active Substance: INFLIXIMAB
     Indication: Rheumatoid arthritis
     Dosage: 3 AMPOULES EVERY 2 MONTHS
     Route: 042
     Dates: start: 20221215
  2. LOSARTAN [Concomitant]
     Active Substance: LOSARTAN
     Indication: Hypertension
     Dosage: 1 CAPSULE PER DAY
     Route: 048
     Dates: start: 2015
  3. CARVEDILOL [Concomitant]
     Active Substance: CARVEDILOL
     Indication: Hypertension
     Dosage: 2 CAPSULE PER DAY
     Route: 048
     Dates: start: 2015
  4. GLIFAGE [METFORMIN] [Concomitant]
     Indication: Diabetes mellitus
     Dosage: 3 CAPSULES PER DAY
     Route: 048
     Dates: start: 2015
  5. ASPIRIN [Concomitant]
     Active Substance: ASPIRIN
     Dosage: 100 MILLIGRAM, 1 CAPSULE PER DAY
     Route: 048
     Dates: start: 2015
  6. ATORVASTATIN [Concomitant]
     Active Substance: ATORVASTATIN
     Indication: Blood cholesterol increased
     Dosage: 80 MILLIGRAM, 1 CAPSULE PER DAY
     Route: 048
     Dates: start: 2015

REACTIONS (4)
  - Gastroenteritis rotavirus [Unknown]
  - Abdominal pain upper [Unknown]
  - Malaise [Unknown]
  - Intentional dose omission [Unknown]
